FAERS Safety Report 4598560-3 (Version None)
Quarter: 2005Q1

REPORT INFORMATION
  Report Type: 
  Country: None (occurrence: None)
  Receive Date: 20050228
  Receipt Date: 20050209
  Transmission Date: 20050727
  Serious: Yes (Disabling)
  Sender: FDA-Public Use
  Company Number: 2005-00300

PATIENT
  Age: 63 Year
  Sex: Male

DRUGS (6)
  1. IMMUCYST          (BCG - IT (CONNAUGHT)) [Suspect]
     Indication: BLADDER CANCER
     Dosage: (81.0 MG), B.IN
     Route: 042
     Dates: start: 20041220, end: 20050117
  2. AMLODIPINE BESYLATE [Concomitant]
  3. ENALAPRIL MALEATE [Concomitant]
  4. ALLOPURINOL [Concomitant]
  5. PRAVASTATIN SODIUM [Concomitant]
  6. SPIRONOLACTONE [Concomitant]

REACTIONS (6)
  - BLOOD CREATINE INCREASED [None]
  - GLOMERULONEPHRITIS PROLIFERATIVE [None]
  - NEPHROPATHY [None]
  - PYREXIA [None]
  - RENAL FAILURE ACUTE [None]
  - SEPTIC SHOCK [None]
